FAERS Safety Report 22152621 (Version 1)
Quarter: 2023Q1

REPORT INFORMATION
  Report Type: Spontaneous
  Country: US (occurrence: US)
  Receive Date: 20230329
  Receipt Date: 20230329
  Transmission Date: 20230418
  Serious: No
  Sender: FDA-Public Use
  Company Number: US-NOVAST LABORATORIES INC.-2022NOV000268

PATIENT

DRUGS (1)
  1. METOPROLOL SUCCINATE [Suspect]
     Active Substance: METOPROLOL SUCCINATE
     Indication: Product used for unknown indication
     Dosage: 50 MILLIGRAM ONCE A DAY
     Route: 065

REACTIONS (3)
  - Abdominal pain upper [Unknown]
  - Gastrointestinal disorder [Unknown]
  - Dyspepsia [Unknown]
